FAERS Safety Report 20701645 (Version 1)
Quarter: 2022Q2

REPORT INFORMATION
  Report Type: Report from Study
  Country: MY (occurrence: MY)
  Receive Date: 20220412
  Receipt Date: 20220412
  Transmission Date: 20220720
  Serious: Yes (Hospitalization)
  Sender: FDA-Public Use
  Company Number: MY-NOVARTISPH-NVSC2021MY184985

PATIENT
  Sex: Male

DRUGS (1)
  1. ENTRESTO [Suspect]
     Active Substance: SACUBITRIL\VALSARTAN
     Indication: Cardiac failure
     Dosage: 100 MG
     Route: 048

REACTIONS (6)
  - Exercise tolerance decreased [Unknown]
  - Pollakiuria [Unknown]
  - Joint swelling [Unknown]
  - Lethargy [Unknown]
  - Abdominal distension [Unknown]
  - Fatigue [Unknown]
